FAERS Safety Report 8773714 (Version 1)
Quarter: 2012Q4

REPORT INFORMATION
  Report Type: 
  Country: US (occurrence: US)
  Receive Date: 20120907
  Receipt Date: 20120907
  Transmission Date: 20130627
  Serious: Yes (Hospitalization, Disabling, Other)
  Sender: FDA-Public Use
  Company Number: US-B.I. PHARMACEUTICALS,INC./RIDGEFIELD-2012-BP-21298BP

PATIENT
  Sex: Female

DRUGS (4)
  1. MOBIC [Suspect]
  2. DARVON [Suspect]
  3. DARVOCET [Suspect]
     Indication: PAIN
     Dates: start: 20100624
  4. ASPIRIN [Concomitant]

REACTIONS (2)
  - Arrhythmia [Unknown]
  - Atrioventricular block second degree [Unknown]
